FAERS Safety Report 8493268-6 (Version None)
Quarter: 2012Q2

REPORT INFORMATION
  Report Type: 
  Country: None (occurrence: None)
  Receive Date: 20120627
  Receipt Date: 20120611
  Transmission Date: 20120825
  Serious: Yes (Hospitalization)
  Sender: FDA-Public Use
  Company Number: ACO_30698_2012

PATIENT
  Age: 47 Year
  Sex: Male
  Weight: 110 kg

DRUGS (8)
  1. FAMPRIDINE-SR (FAMPRIDINE) TABLET [Suspect]
     Indication: MULTIPLE SCLEROSIS
     Dosage: 10 MG, BID, ORAL
     Route: 048
     Dates: start: 20120511, end: 20120525
  2. ZESTORETIC [Concomitant]
  3. VESICARE [Concomitant]
  4. D-CURE (COLECALCIFEROL) [Concomitant]
  5. EZETIMIBE/SIMVASTATIN [Concomitant]
  6. TYSABRI [Concomitant]
  7. LYRICA [Concomitant]
  8. CYMBALTA [Concomitant]

REACTIONS (1)
  - UHTHOFF'S PHENOMENON [None]
